FAERS Safety Report 16984067 (Version 4)
Quarter: 2020Q3

REPORT INFORMATION
  Report Type: Report from Study
  Country: CO (occurrence: CO)
  Receive Date: 20191101
  Receipt Date: 20200916
  Transmission Date: 20201102
  Serious: Yes (Other)
  Sender: FDA-Public Use
  Company Number: NVSC2019CO007091

PATIENT
  Sex: Male
  Weight: 78 kg

DRUGS (2)
  1. JADENU [Suspect]
     Active Substance: DEFERASIROX
     Dosage: 1080 MG, QD
     Route: 048
  2. JADENU [Suspect]
     Active Substance: DEFERASIROX
     Indication: IRON OVERLOAD
     Dosage: 1080 MG/ 3 TABLETS OF 360 MG, APPROXIMATELY 6 YEARS AGO
     Route: 048

REACTIONS (10)
  - Headache [Unknown]
  - Abdominal pain upper [Unknown]
  - Gastritis [Unknown]
  - Serum ferritin increased [Unknown]
  - Bone disorder [Unknown]
  - Haemoglobin decreased [Unknown]
  - Pain [Unknown]
  - Blood iron increased [Unknown]
  - Bone marrow disorder [Unknown]
  - Drug intolerance [Unknown]
